FAERS Safety Report 20869365 (Version 1)
Quarter: 2022Q2

REPORT INFORMATION
  Report Type: Spontaneous
  Country: DE (occurrence: DE)
  Receive Date: 20220524
  Receipt Date: 20220524
  Transmission Date: 20220721
  Serious: Yes (Congenital Anomaly, Other)
  Sender: FDA-Public Use
  Company Number: None

PATIENT
  Age: 1 Day
  Sex: Male
  Weight: 3.34 kg

DRUGS (8)
  1. VIMPAT [Suspect]
     Active Substance: LACOSAMIDE
     Indication: Epilepsy
     Dosage: 100 MILLIGRAM, 2X/DAY (BID)
     Route: 064
     Dates: start: 202103, end: 202111
  2. AZATHIOPRINE [Suspect]
     Active Substance: AZATHIOPRINE
     Indication: Systemic lupus erythematosus
     Dosage: 100MG IN MORNING AND 75 MG AT NIGHT
     Route: 064
     Dates: start: 202103, end: 202111
  3. OXCARBAZEPINE [Suspect]
     Active Substance: OXCARBAZEPINE
     Indication: Epilepsy
     Dosage: 1500MG PER DAY
     Route: 064
     Dates: start: 202103, end: 202111
  4. ASPIRIN [Concomitant]
     Active Substance: ASPIRIN
     Indication: Systemic lupus erythematosus
     Dosage: 100 [MG/D ]
     Route: 064
  5. BOOSTRIX [Concomitant]
     Active Substance: TETANUS TOXOID, REDUCED DIPHTHERIA TOXOID AND ACELLULAR PERTUSSIS VACCINE, ADSORBED ANTIGENS
     Indication: Immunisation
     Route: 064
     Dates: start: 20211004, end: 20211004
  6. DALTEPARIN SODIUM [Concomitant]
     Active Substance: DALTEPARIN SODIUM
     Indication: Systemic lupus erythematosus
     Route: 064
  7. PREDNISOLONE [Concomitant]
     Active Substance: PREDNISOLONE
     Indication: Systemic lupus erythematosus
     Dosage: 5MG PER DAY
     Route: 064
     Dates: start: 2021, end: 20210412
  8. FOLIO [CYANOCOBALAMIN;FOLIC ACID;POTASSIUM IODIDE] [Concomitant]
     Indication: Prophylaxis of neural tube defect
     Dosage: UNK
     Dates: start: 2021, end: 20211126

REACTIONS (7)
  - Hypospadias [Unknown]
  - Selective eating disorder [Recovered/Resolved]
  - Respiratory disorder neonatal [Recovered/Resolved]
  - Weight decrease neonatal [Recovered/Resolved]
  - Fatigue [Recovered/Resolved]
  - Maternal exposure before pregnancy [Unknown]
  - Maternal exposure during pregnancy [Unknown]

NARRATIVE: CASE EVENT DATE: 20211101
